FAERS Safety Report 5324970-2 (Version None)
Quarter: 2007Q2

REPORT INFORMATION
  Report Type: 
  Country: None (occurrence: None)
  Receive Date: 20070510
  Receipt Date: 20070510
  Transmission Date: 20071010
  Serious: No
  Sender: FDA-Public Use
  Company Number: None

PATIENT
  Age: 74 Year
  Sex: Female
  Weight: 65.318 kg

DRUGS (2)
  1. AMIODARONE HCL [Suspect]
     Indication: HEART RATE IRREGULAR
     Dosage: ONE TABLET ONCE A DAY PO
     Route: 048
     Dates: start: 20060827, end: 20060927
  2. AMIODARONE HCL [Suspect]
     Indication: PROPHYLAXIS
     Dosage: ONE TABLET ONCE A DAY PO
     Route: 048
     Dates: start: 20060827, end: 20060927

REACTIONS (6)
  - ALOPECIA [None]
  - CONSTIPATION [None]
  - DYSPNOEA [None]
  - NIGHT SWEATS [None]
  - THYROID DISORDER [None]
  - WEIGHT INCREASED [None]
